FAERS Safety Report 17312910 (Version 4)
Quarter: 2020Q1

REPORT INFORMATION
  Report Type: Spontaneous
  Country: US (occurrence: US)
  Receive Date: 20200124
  Receipt Date: 20200304
  Transmission Date: 20200409
  Serious: Yes (Other)
  Sender: FDA-Public Use
  Company Number: US-AMGEN INC.-USASP2020009609

PATIENT
  Age: 54 Year
  Sex: Female

DRUGS (1)
  1. AIMOVIG [Suspect]
     Active Substance: ERENUMAB-AOOE
     Indication: MIGRAINE
     Dosage: 140 MILLIGRAM
     Route: 065
     Dates: start: 2019

REACTIONS (18)
  - Dysarthria [Not Recovered/Not Resolved]
  - Incorrect disposal of product [Unknown]
  - Loss of consciousness [Unknown]
  - Therapeutic product effect delayed [Unknown]
  - Concussion [Not Recovered/Not Resolved]
  - Skin abrasion [Unknown]
  - Wrong technique in product usage process [Unknown]
  - Back pain [Not Recovered/Not Resolved]
  - Visual impairment [Not Recovered/Not Resolved]
  - Headache [Unknown]
  - Migraine [Not Recovered/Not Resolved]
  - Device issue [Unknown]
  - Head injury [Unknown]
  - Fall [Not Recovered/Not Resolved]
  - Mobility decreased [Unknown]
  - Urinary incontinence [Unknown]
  - Injection site pain [Recovered/Resolved]
  - Injection site haemorrhage [Unknown]

NARRATIVE: CASE EVENT DATE: 20200116
